FAERS Safety Report 8923028 (Version 2)
Quarter: 2013Q1

REPORT INFORMATION
  Report Type: Report from Study
  Country: DE (occurrence: DE)
  Receive Date: 20121123
  Receipt Date: 20130125
  Transmission Date: 20140127
  Serious: Yes (Other)
  Sender: FDA-Public Use
  Company Number: DE-ROCHE-1158441

PATIENT
  Sex: 0

DRUGS (14)
  1. RITUXIMAB [Suspect]
     Indication: BURKITT^S LYMPHOMA
     Route: 065
  2. RITUXIMAB [Suspect]
     Indication: BURKITT^S LEUKAEMIA
  3. METHOTREXATE [Suspect]
     Indication: BURKITT^S LYMPHOMA
     Dosage: HIGH DOSE METHOTREXATE
     Route: 065
  4. METHOTREXATE [Suspect]
     Indication: BURKITT^S LEUKAEMIA
     Route: 037
  5. ARA-C [Suspect]
     Indication: BURKITT^S LYMPHOMA
     Dosage: HIGH DOSE
     Route: 065
  6. ARA-C [Suspect]
     Indication: BURKITT^S LEUKAEMIA
     Route: 039
  7. CYCLOPHOSPHAMIDE [Suspect]
     Indication: BURKITT^S LYMPHOMA
     Route: 065
  8. CYCLOPHOSPHAMIDE [Suspect]
     Indication: BURKITT^S LEUKAEMIA
  9. ETOPOSIDE [Suspect]
     Indication: BURKITT^S LYMPHOMA
     Route: 065
  10. ETOPOSIDE [Suspect]
     Indication: BURKITT^S LEUKAEMIA
  11. IFOSFAMIDE [Suspect]
     Indication: BURKITT^S LYMPHOMA
     Route: 065
  12. IFOSFAMIDE [Suspect]
     Indication: BURKITT^S LEUKAEMIA
  13. DEXAMETHASONE [Suspect]
     Indication: BURKITT^S LYMPHOMA
     Route: 037
  14. DEXAMETHASONE [Suspect]
     Indication: BURKITT^S LEUKAEMIA

REACTIONS (4)
  - Neutropenia [Unknown]
  - Mucosal inflammation [Unknown]
  - Infection [Unknown]
  - Neurotoxicity [Unknown]
